FAERS Safety Report 23613191 (Version 1)
Quarter: 2024Q1

REPORT INFORMATION
  Report Type: Spontaneous
  Country: BR (occurrence: BR)
  Receive Date: 20240308
  Receipt Date: 20240308
  Transmission Date: 20240410
  Serious: Yes (Other)
  Sender: FDA-Public Use
  Company Number: BR-GLAXOSMITHKLINE-BR2024AMR029910

PATIENT

DRUGS (12)
  1. NUCALA [Suspect]
     Active Substance: MEPOLIZUMAB
     Indication: Product used for unknown indication
     Dosage: UNK
     Dates: start: 2019
  2. MONTELUKAST [Concomitant]
     Active Substance: MONTELUKAST SODIUM
     Indication: Product used for unknown indication
     Dosage: UNK
  3. BECLOMETHASONE [Concomitant]
     Active Substance: BECLOMETHASONE
     Indication: Product used for unknown indication
     Dosage: UNK, 800 MCG/DAY
  4. BUDESONIDE\FORMOTEROL [Concomitant]
     Active Substance: BUDESONIDE\FORMOTEROL
     Indication: Product used for unknown indication
     Dosage: UNK, BID
  5. BUDESONIDE [Concomitant]
     Active Substance: BUDESONIDE
     Indication: Product used for unknown indication
     Dosage: UNK
  6. ALBUTEROL [Concomitant]
     Active Substance: ALBUTEROL
     Indication: Product used for unknown indication
     Dosage: UNK, 4 TO 8 PUFFS/DAY
  7. OMEPRAZOLE [Concomitant]
     Active Substance: OMEPRAZOLE
     Indication: Product used for unknown indication
     Dosage: UNK
  8. PREDNISONE [Concomitant]
     Active Substance: PREDNISONE
     Indication: Product used for unknown indication
     Dosage: UNK, 20 TO 40 MG FOR 5 TO 10 DAYS
  9. PREDNISONE [Concomitant]
     Active Substance: PREDNISONE
     Dosage: UNK, 10 MG/DAY
     Dates: start: 201904
  10. PREDNISONE [Concomitant]
     Active Substance: PREDNISONE
     Dosage: UNK,20 MG/DAY
     Dates: start: 201910
  11. PREDNISONE [Concomitant]
     Active Substance: PREDNISONE
     Dosage: UNK, 40MG FOR 5 DAYS
  12. TIOTROPIUM [Concomitant]
     Active Substance: TIOTROPIUM
     Indication: Product used for unknown indication
     Dosage: UNK

REACTIONS (9)
  - Hypothyroidism [Unknown]
  - Nasal polyps [Unknown]
  - Dyspnoea exertional [Unknown]
  - Loss of personal independence in daily activities [Unknown]
  - Dyspepsia [Unknown]
  - Asthma [Unknown]
  - Sleep disorder [Unknown]
  - Hypertension [Unknown]
  - Peak expiratory flow rate abnormal [Unknown]
